FAERS Safety Report 5569665-5 (Version None)
Quarter: 2007Q4

REPORT INFORMATION
  Report Type: 
  Country: None (occurrence: None)
  Receive Date: 20071220
  Receipt Date: 20071218
  Transmission Date: 20080405
  Serious: Yes (Hospitalization)
  Sender: FDA-Public Use
  Company Number: B0498913A

PATIENT
  Age: 43 Year
  Sex: Male
  Weight: 74 kg

DRUGS (11)
  1. ZOVIRAX [Suspect]
     Indication: HERPES ZOSTER
     Dosage: 200MG TWICE PER DAY
     Route: 048
     Dates: start: 20071126, end: 20071130
  2. ISCOTIN [Concomitant]
     Indication: LYMPH NODE TUBERCULOSIS
     Dosage: 300MG PER DAY
     Route: 048
     Dates: start: 20070528
  3. RIFADIN [Concomitant]
     Indication: LYMPH NODE TUBERCULOSIS
     Dosage: 450MG PER DAY
     Route: 048
     Dates: start: 20070528
  4. PYDOXAL [Concomitant]
     Indication: LYMPH NODE TUBERCULOSIS
     Dosage: 60MG PER DAY
     Route: 048
     Dates: start: 20070528
  5. ARTIST [Concomitant]
     Indication: HYPERTENSION
     Dosage: 10MG PER DAY
     Route: 048
     Dates: start: 20070412
  6. CARDENALIN [Concomitant]
     Indication: HYPERTENSION
     Dosage: 8MG PER DAY
     Route: 048
     Dates: start: 20061214
  7. ADALAT [Concomitant]
     Indication: HYPERTENSION
     Dosage: 80MG PER DAY
     Route: 048
  8. GASTER [Concomitant]
     Indication: HYPERTENSION
     Dosage: 10MG PER DAY
     Route: 048
     Dates: start: 20070802
  9. OLMETEC [Concomitant]
     Indication: HYPERTENSION
     Dosage: 40MG PER DAY
     Route: 048
     Dates: start: 20070611
  10. ALDOMET [Concomitant]
     Indication: HYPERTENSION
     Dosage: 750MG PER DAY
     Route: 048
     Dates: start: 20070405
  11. CEFOPERAZONE+SULBACTAM [Concomitant]

REACTIONS (3)
  - ABDOMINAL PAIN [None]
  - PANCREATITIS ACUTE [None]
  - PANCREATITIS RELAPSING [None]
